FAERS Safety Report 5799328-2 (Version None)
Quarter: 2008Q3

REPORT INFORMATION
  Report Type: 
  Country: None (occurrence: None)
  Receive Date: 20080702
  Receipt Date: 20080623
  Transmission Date: 20090109
  Serious: Yes (Hospitalization)
  Sender: FDA-Public Use
  Company Number: US-PFIZER INC-2008052448

PATIENT
  Sex: Female
  Weight: 70 kg

DRUGS (5)
  1. METHYLPREDNISOLONE 16MG TAB [Suspect]
     Indication: RHEUMATOID ARTHRITIS
     Route: 048
  2. ETANERCEPT [Suspect]
     Indication: RHEUMATOID ARTHRITIS
     Dosage: DAILY DOSE:25MG
     Route: 058
     Dates: start: 20061016, end: 20061016
  3. ISONIAZID [Concomitant]
     Route: 048
  4. METHOTREXATE [Concomitant]
     Indication: RHEUMATOID ARTHRITIS
     Dosage: DAILY DOSE:2MG-FREQ:FREQUENCY:1 IN 1 DAYS
     Route: 048
  5. BUCILLAMINE [Concomitant]
     Indication: RHEUMATOID ARTHRITIS
     Dosage: DAILY DOSE:100MG-FREQ:FREQUENCY:1 IN 1 DAYS
     Route: 048

REACTIONS (5)
  - DYSPNOEA [None]
  - LIVER DISORDER [None]
  - MALAISE [None]
  - PYREXIA [None]
  - VOMITING [None]
